FAERS Safety Report 23119446 (Version 1)
Quarter: 2023Q4

REPORT INFORMATION
  Report Type: Spontaneous
  Country: ES (occurrence: ES)
  Receive Date: 20231028
  Receipt Date: 20231028
  Transmission Date: 20240110
  Serious: Yes (Hospitalization)
  Sender: FDA-Public Use
  Company Number: ES-BoehringerIngelheim-2023-BI-261426

PATIENT
  Age: 83 Year
  Sex: Female

DRUGS (2)
  1. OFEV [Suspect]
     Active Substance: NINTEDANIB
     Indication: Pulmonary fibrosis
     Dosage: WITHDRAWN
  2. OFEV [Suspect]
     Active Substance: NINTEDANIB
     Dosage: REINTRODUCED AT DISCHARGE

REACTIONS (2)
  - Pancreatitis [Recovered/Resolved]
  - Cholangitis [Recovered/Resolved]
